FAERS Safety Report 16072977 (Version 1)
Quarter: 2019Q1

REPORT INFORMATION
  Report Type: Report from Study
  Country: US (occurrence: US)
  Receive Date: 20190314
  Receipt Date: 20190314
  Transmission Date: 20190418
  Serious: Yes (Death, Other)
  Sender: FDA-Public Use
  Company Number: US-REGENERON PHARMACEUTICALS, INC.-2019-15615

PATIENT

DRUGS (18)
  1. EYLEA [Suspect]
     Active Substance: AFLIBERCEPT
     Dosage: UNK, OS
     Dates: start: 20170308, end: 20170308
  2. EYLEA [Suspect]
     Active Substance: AFLIBERCEPT
     Dosage: UNK, OD
     Dates: start: 20170802, end: 20170802
  3. EYLEA [Suspect]
     Active Substance: AFLIBERCEPT
     Dosage: UNK, OS
     Dates: start: 20170823, end: 20170823
  4. EYLEA [Suspect]
     Active Substance: AFLIBERCEPT
     Indication: DIABETIC RETINOPATHY
     Dosage: UNK, OU
     Dates: start: 20170201, end: 20171227
  5. EYLEA [Suspect]
     Active Substance: AFLIBERCEPT
     Dosage: UNK, OS
     Dates: start: 20170412, end: 20170412
  6. EYLEA [Suspect]
     Active Substance: AFLIBERCEPT
     Dosage: UNK, OD
     Dates: start: 20171004, end: 20171004
  7. EYLEA [Suspect]
     Active Substance: AFLIBERCEPT
     Dosage: UNK, OD
     Dates: start: 20171227, end: 20171227
  8. EYLEA [Suspect]
     Active Substance: AFLIBERCEPT
     Dosage: UNK, OS
     Dates: start: 20170531, end: 20170531
  9. EYLEA [Suspect]
     Active Substance: AFLIBERCEPT
     Indication: DIABETIC RETINAL OEDEMA
     Dosage: UNK, OD
     Dates: start: 20170208, end: 20170208
  10. EYLEA [Suspect]
     Active Substance: AFLIBERCEPT
     Dosage: UNK, OS
     Dates: start: 20170927, end: 20170927
  11. EYLEA [Suspect]
     Active Substance: AFLIBERCEPT
     Dosage: UNK, OS
     Dates: start: 20071129, end: 20071129
  12. EYLEA [Suspect]
     Active Substance: AFLIBERCEPT
     Dosage: UNK, OD
     Dates: start: 20170426, end: 20170426
  13. EYLEA [Suspect]
     Active Substance: AFLIBERCEPT
     Dosage: UNK, OD
     Dates: start: 20170705, end: 20170705
  14. EYLEA [Suspect]
     Active Substance: AFLIBERCEPT
     Dosage: UNK, OS
     Dates: start: 20170719, end: 20170719
  15. EYLEA [Suspect]
     Active Substance: AFLIBERCEPT
     Dosage: UNK, OS
     Dates: start: 20171025, end: 20171025
  16. EYLEA [Suspect]
     Active Substance: AFLIBERCEPT
     Dosage: UNK, OD
     Dates: start: 20170830, end: 20170830
  17. EYLEA [Suspect]
     Active Substance: AFLIBERCEPT
     Dosage: UNK, OD
     Dates: start: 20171122, end: 20171122
  18. EYLEA [Suspect]
     Active Substance: AFLIBERCEPT
     Dosage: UNK, OD
     Dates: start: 20170322, end: 20170322

REACTIONS (1)
  - Death [Fatal]

NARRATIVE: CASE EVENT DATE: 20181022
